FAERS Safety Report 23720122 (Version 1)
Quarter: 2024Q2

REPORT INFORMATION
  Report Type: Spontaneous
  Country: AT (occurrence: AT)
  Receive Date: 20240408
  Receipt Date: 20240408
  Transmission Date: 20240716
  Serious: Yes (Other)
  Sender: FDA-Public Use
  Company Number: AT-AKCEA THERAPEUTICS, INC.-2024IS003268

PATIENT

DRUGS (1)
  1. TEGSEDI [Suspect]
     Active Substance: INOTERSEN SODIUM
     Indication: Hereditary neuropathic amyloidosis
     Dosage: UNK
     Route: 065
     Dates: start: 2020

REACTIONS (11)
  - Cardiac failure chronic [Unknown]
  - N-terminal prohormone brain natriuretic peptide increased [Unknown]
  - Dizziness postural [Unknown]
  - Body mass index increased [Unknown]
  - Carpal tunnel syndrome [Unknown]
  - Oedema peripheral [Unknown]
  - Glomerular filtration rate decreased [Unknown]
  - Cardiac hypertrophy [Unknown]
  - Cardiac amyloidosis [Unknown]
  - Troponin T increased [Unknown]
  - Right ventricular ejection fraction decreased [Unknown]

NARRATIVE: CASE EVENT DATE: 20210101
